FAERS Safety Report 16823177 (Version 2)
Quarter: 2019Q4

REPORT INFORMATION
  Report Type: Report from Study
  Country: RO (occurrence: RO)
  Receive Date: 20190918
  Receipt Date: 20191204
  Transmission Date: 20200122
  Serious: Yes (Hospitalization, Other)
  Sender: FDA-Public Use
  Company Number: RO-GILEAD-2019-0418842

PATIENT
  Age: 69 Year
  Sex: Female

DRUGS (9)
  1. LEDIPASVIR/SOFOSBUVIR [Suspect]
     Active Substance: LEDIPASVIR\SOFOSBUVIR
     Indication: HEPATITIS C
     Dosage: 1 DOSAGE FORM, QD
     Route: 048
     Dates: start: 20190619, end: 20190910
  2. LEDIPASVIR/SOFOSBUVIR [Suspect]
     Active Substance: LEDIPASVIR\SOFOSBUVIR
     Indication: HEPATIC CIRRHOSIS
  3. SYMBICORT [Concomitant]
     Active Substance: BUDESONIDE\FORMOTEROL FUMARATE DIHYDRATE
     Indication: ASTHMA
  4. ALGOCALMIN [Concomitant]
     Active Substance: METAMIZOLE SODIUM
     Indication: BACK PAIN
  5. ALGOCALMIN [Concomitant]
     Active Substance: METAMIZOLE SODIUM
     Indication: SPINAL OSTEOARTHRITIS
     Dosage: UNK
  6. RIBAVIRIN. [Suspect]
     Active Substance: RIBAVIRIN
     Indication: HEPATITIS C
     Dosage: 5 DOSAGE FORM, QD
     Route: 048
     Dates: start: 20190619
  7. INSULIN [Concomitant]
     Active Substance: INSULIN NOS
     Indication: DIABETES MELLITUS
  8. RIBAVIRIN. [Suspect]
     Active Substance: RIBAVIRIN
     Indication: HEPATIC CIRRHOSIS
  9. EUTHYROX [Concomitant]
     Active Substance: LEVOTHYROXINE SODIUM
     Indication: THYROID DISORDER

REACTIONS (8)
  - Ascites [Recovered/Resolved]
  - Lower respiratory tract infection [Recovered/Resolved]
  - Ascites [Not Recovered/Not Resolved]
  - Haemoglobin decreased [Recovered/Resolved]
  - Abdominal distension [Not Recovered/Not Resolved]
  - Abdominal distension [Recovered/Resolved]
  - Oedema peripheral [Not Recovered/Not Resolved]
  - Fatigue [Not Recovered/Not Resolved]

NARRATIVE: CASE EVENT DATE: 20190626
